FAERS Safety Report 23705580 (Version 1)
Quarter: 2024Q2

REPORT INFORMATION
  Report Type: Spontaneous
  Country: US (occurrence: US)
  Receive Date: 20240404
  Receipt Date: 20240404
  Transmission Date: 20240716
  Serious: Yes (Disabling, Other)
  Sender: FDA-Public Use
  Company Number: US-HORIZON THERAPEUTICS-HZN-2024-003831

PATIENT

DRUGS (2)
  1. TEPEZZA [Suspect]
     Active Substance: TEPROTUMUMAB-TRBW
     Indication: Endocrine ophthalmopathy
     Dosage: 1ST INFUSION
     Route: 042
     Dates: start: 202107
  2. TEPEZZA [Suspect]
     Active Substance: TEPROTUMUMAB-TRBW
     Dosage: UNKNOWN INFUSION
     Route: 042
     Dates: start: 202208

REACTIONS (14)
  - Deafness permanent [Unknown]
  - Disability [Unknown]
  - Physical disability [Unknown]
  - Injury [Unknown]
  - Pain [Unknown]
  - Anxiety [Unknown]
  - Deformity [Unknown]
  - Anhedonia [Unknown]
  - Discomfort [Unknown]
  - Emotional distress [Unknown]
  - Economic problem [Unknown]
  - Concomitant disease aggravated [Unknown]
  - Product quality issue [Unknown]
  - Tinnitus [Unknown]
